FAERS Safety Report 5060074-4 (Version None)
Quarter: 2006Q3

REPORT INFORMATION
  Report Type: 
  Country: None (occurrence: None)
  Receive Date: 20060719
  Receipt Date: 20060710
  Transmission Date: 20061208
  Serious: Yes (Other)
  Sender: FDA-Public Use
  Company Number: GXKR2006ES03927

PATIENT
  Age: 52 Year
  Sex: Female

DRUGS (2)
  1. OMEPRAZOLE [Suspect]
     Dosage: 20 MG
  2. LOVASTATIN [Concomitant]

REACTIONS (1)
  - SKIN HYPERPIGMENTATION [None]
